FAERS Safety Report 17307890 (Version 1)
Quarter: 2020Q1

REPORT INFORMATION
  Report Type: Spontaneous
  Country: US (occurrence: US)
  Receive Date: 20200123
  Receipt Date: 20200123
  Transmission Date: 20200409
  Serious: No
  Sender: FDA-Public Use
  Company Number: US-ALLERGAN-1910601US

PATIENT
  Age: 9 Year
  Sex: Female
  Weight: 25.85 kg

DRUGS (2)
  1. MONUROL [Suspect]
     Active Substance: FOSFOMYCIN TROMETHAMINE
     Indication: INFECTION PROPHYLAXIS
  2. MONUROL [Suspect]
     Active Substance: FOSFOMYCIN TROMETHAMINE
     Indication: REFLUX NEPHROPATHY
     Dosage: HALF A SACHET ONCE A WEEK
     Route: 065
     Dates: start: 20190314

REACTIONS (1)
  - Off label use [Unknown]
